FAERS Safety Report 7680659-6 (Version None)
Quarter: 2011Q3

REPORT INFORMATION
  Report Type: 
  Country: None (occurrence: None)
  Receive Date: 20110812
  Receipt Date: 20110808
  Transmission Date: 20111222
  Serious: Yes (Hospitalization)
  Sender: FDA-Public Use
  Company Number: NL-SANOFI-AVENTIS-2011SA051010

PATIENT
  Age: 23 Year
  Sex: Male
  Weight: 69 kg

DRUGS (2)
  1. VENLAFAXINE [Concomitant]
     Route: 048
     Dates: start: 20110420
  2. LANTUS [Suspect]
     Dates: start: 20031101

REACTIONS (1)
  - METABOLIC ACIDOSIS [None]
